FAERS Safety Report 7444226-1 (Version None)
Quarter: 2011Q2

REPORT INFORMATION
  Report Type: 
  Country: None (occurrence: None)
  Receive Date: 20110429
  Receipt Date: 20101102
  Transmission Date: 20111010
  Serious: Yes (Hospitalization, Other)
  Sender: FDA-Public Use
  Company Number: US-BAYER-201023850NA

PATIENT
  Age: 44 Year
  Sex: Female
  Weight: 106.58 kg

DRUGS (16)
  1. IBUPROFEN [Concomitant]
  2. LORTAB [Concomitant]
  3. ULTRAM [Concomitant]
  4. SYNTHROID [Concomitant]
     Indication: HYPOTHYROIDISM
     Dosage: UNK
     Dates: start: 20050301
  5. VALTREX [Concomitant]
     Indication: VAGINAL MUCOSAL BLISTERING
     Dosage: UNK
     Dates: start: 20060415
  6. NIACIN [Concomitant]
  7. ALLEGRA [Concomitant]
     Indication: MULTIPLE ALLERGIES
  8. MAXZIDE [Concomitant]
  9. ALBUTEROL [Concomitant]
     Indication: ASTHMA
     Dosage: UNK
     Dates: start: 20080502, end: 20080521
  10. ADVAIR DISKUS 100/50 [Concomitant]
     Indication: ASTHMA
     Dosage: UNK
     Dates: start: 20060101, end: 20090101
  11. FLUTICASONE PROPIONATE [Concomitant]
     Indication: MULTIPLE ALLERGIES
     Dosage: 50 ?G, QD
     Dates: start: 20080502, end: 20080520
  12. FEXOFENADINE [Concomitant]
     Dosage: 180 MG, UNK
     Dates: start: 20070716
  13. XYZAL [Concomitant]
     Dosage: UNK
     Dates: start: 20080101, end: 20090101
  14. PREDNISONE [Concomitant]
  15. YASMIN [Suspect]
     Indication: CONTRACEPTION
     Route: 048
     Dates: start: 20060415, end: 20080513
  16. RESPIRATORY SYSTEM [Concomitant]

REACTIONS (6)
  - PELVIC VENOUS THROMBOSIS [None]
  - DEEP VEIN THROMBOSIS [None]
  - THROMBOPHLEBITIS SUPERFICIAL [None]
  - MYALGIA [None]
  - OEDEMA PERIPHERAL [None]
  - PAIN IN EXTREMITY [None]
